FAERS Safety Report 6363792-0 (Version None)
Quarter: 2009Q3

REPORT INFORMATION
  Report Type: 
  Country: None (occurrence: None)
  Receive Date: 20090919
  Receipt Date: 20090707
  Transmission Date: 20100115
  Serious: No
  Sender: FDA-Public Use
  Company Number: US-ABBOTT-09P-163-0584088-00

PATIENT
  Sex: Female
  Weight: 59.02 kg

DRUGS (5)
  1. HUMIRA [Suspect]
     Indication: PSORIATIC ARTHROPATHY
     Dates: start: 20070101, end: 20090501
  2. WELLBUTRIN [Concomitant]
     Indication: DEPRESSION
  3. WELLBUTRIN [Concomitant]
     Indication: ANXIETY
  4. PAXIL [Concomitant]
     Indication: DEPRESSION
  5. PAXIL [Concomitant]
     Indication: ANXIETY

REACTIONS (4)
  - DRUG DOSE OMISSION [None]
  - JOINT SWELLING [None]
  - MALAISE [None]
  - PHARYNGITIS STREPTOCOCCAL [None]
